FAERS Safety Report 6622759-5 (Version None)
Quarter: 2010Q1

REPORT INFORMATION
  Report Type: 
  Country: None (occurrence: None)
  Receive Date: 20100310
  Receipt Date: 20100301
  Transmission Date: 20100710
  Serious: Yes (Hospitalization)
  Sender: FDA-Public Use
  Company Number: US-JNJFOC-20091205844

PATIENT
  Sex: Female
  Weight: 69.31 kg

DRUGS (15)
  1. REMICADE [Suspect]
     Indication: PSORIATIC ARTHROPATHY
     Dosage: 8TH INFUSION
     Route: 042
  2. REMICADE [Suspect]
     Route: 042
  3. REMICADE [Suspect]
     Route: 042
  4. REMICADE [Suspect]
     Dosage: INFUSION 7
     Route: 042
  5. REMICADE [Suspect]
     Dosage: INFUSION 5
     Route: 042
  6. REMICADE [Suspect]
     Dosage: HAD 3 LOADING DOSES
     Route: 042
  7. METHOTREXATE [Concomitant]
     Indication: PSORIATIC ARTHROPATHY
     Route: 048
  8. TYLENOL-500 [Concomitant]
     Indication: PREMEDICATION
  9. TYLENOL-500 [Concomitant]
  10. TYLENOL-500 [Concomitant]
  11. TYLENOL-500 [Concomitant]
  12. CLARINEX [Concomitant]
     Indication: PREMEDICATION
  13. CLARINEX [Concomitant]
  14. CLARINEX [Concomitant]
  15. CLARINEX [Concomitant]

REACTIONS (4)
  - LUNG INFILTRATION [None]
  - PERICARDIAL EFFUSION [None]
  - PLEURITIC PAIN [None]
  - RESPIRATORY MONILIASIS [None]
